FAERS Safety Report 25752534 (Version 3)
Quarter: 2025Q3

REPORT INFORMATION
  Report Type: Spontaneous
  Country: EU (occurrence: EU)
  Receive Date: 20250902
  Receipt Date: 20250911
  Transmission Date: 20251021
  Serious: Yes (Hospitalization, Other)
  Sender: MYLAN
  Company Number: EU-MEDO2008-003140

PATIENT
  Age: 22 Year
  Sex: Male

DRUGS (6)
  1. PREGABALIN [Suspect]
     Active Substance: PREGABALIN
     Indication: Discomfort
  2. PREGABALIN [Suspect]
     Active Substance: PREGABALIN
  3. BACLOFEN [Suspect]
     Active Substance: BACLOFEN
     Indication: Discomfort
  4. BACLOFEN [Suspect]
     Active Substance: BACLOFEN
  5. EPHEDRINE [Suspect]
     Active Substance: EPHEDRINE
     Indication: Product used for unknown indication
  6. CLONAZEPAM [Suspect]
     Active Substance: CLONAZEPAM
     Indication: Mental disorder

REACTIONS (21)
  - Apnoeic attack [Unknown]
  - Mental impairment [Unknown]
  - Tachycardia [Unknown]
  - Hallucinations, mixed [Unknown]
  - Infection [Unknown]
  - Pyrexia [Recovered/Resolved]
  - Delirium [Recovered/Resolved]
  - Neurological symptom [Recovered/Resolved]
  - Seizure [Recovered/Resolved]
  - Muscle tone disorder [Recovered/Resolved]
  - Extrapyramidal disorder [Recovered/Resolved]
  - Sopor [Recovered/Resolved]
  - Substance abuse [Unknown]
  - Drug dependence [Unknown]
  - Substance dependence [Unknown]
  - Drug abuse [Unknown]
  - Overdose [Unknown]
  - Confusional state [Unknown]
  - Disorganised speech [Unknown]
  - Body dysmorphic disorder [Unknown]
  - Insomnia [Unknown]

NARRATIVE: CASE EVENT DATE: 20230901
